FAERS Safety Report 6419713-5 (Version None)
Quarter: 2009Q4

REPORT INFORMATION
  Report Type: 
  Country: None (occurrence: None)
  Receive Date: 20091013
  Receipt Date: 20090209
  Transmission Date: 20100525
  Serious: No
  Sender: FDA-Public Use
  Company Number: 2009BM000033

PATIENT
  Age: 21 Month
  Sex: Female
  Weight: 10.5 kg

DRUGS (3)
  1. KUVAN [Suspect]
     Indication: PHENYLKETONURIA
     Dosage: 200 MG;QD;PO; 100 MG;QD;PO
     Route: 048
     Dates: start: 20090126, end: 20090101
  2. KUVAN [Suspect]
     Indication: PHENYLKETONURIA
     Dosage: 200 MG;QD;PO; 100 MG;QD;PO
     Route: 048
     Dates: start: 20090101
  3. MOTRIN [Concomitant]

REACTIONS (3)
  - AMINO ACID LEVEL INCREASED [None]
  - NASOPHARYNGITIS [None]
  - STAPHYLOCOCCAL INFECTION [None]
